APPROVED DRUG PRODUCT: CRENESSITY
Active Ingredient: CRINECERFONT
Strength: 50MG
Dosage Form/Route: CAPSULE;ORAL
Application: N218808 | Product #002
Applicant: NEUROCRINE BIOSCIENCES INC
Approved: Dec 13, 2024 | RLD: Yes | RS: No | Type: RX

PATENTS:
Patent 12128033 | Expires: Jun 9, 2041
Patent 10905690 | Expires: Jan 21, 2035
Patent 11311544 | Expires: Jan 21, 2035
Patent 11730739 | Expires: Jan 21, 2035

EXCLUSIVITY:
Code: NCE | Date: Dec 13, 2029
Code: ODE-503 | Date: Dec 13, 2031